FAERS Safety Report 4839679-9 (Version None)
Quarter: 2005Q4

REPORT INFORMATION
  Report Type: 
  Country: None (occurrence: None)
  Receive Date: 20051129
  Receipt Date: 20050527
  Transmission Date: 20060501
  Serious: Yes (Disabling, Other)
  Sender: FDA-Public Use
  Company Number: US-GLAXOSMITHKLINE-A0560410A

PATIENT
  Age: 91 Year
  Sex: Female
  Weight: 50.9 kg

DRUGS (8)
  1. WELLBUTRIN SR [Suspect]
     Indication: DEPRESSION
     Dosage: 50MG PER DAY
     Route: 048
     Dates: start: 20050429, end: 20050513
  2. COMPAZINE [Concomitant]
  3. COZAAR [Concomitant]
  4. GLYBURIDE [Concomitant]
  5. ACTOS [Concomitant]
  6. MEGESTROL [Concomitant]
  7. VITAMINS [Concomitant]
  8. ARICEPT [Concomitant]

REACTIONS (1)
  - NAUSEA [None]
